FAERS Safety Report 15353310 (Version 4)
Quarter: 2018Q4

REPORT INFORMATION
  Report Type: Spontaneous
  Country: JP (occurrence: JP)
  Receive Date: 20180905
  Receipt Date: 20181219
  Transmission Date: 20190204
  Serious: Yes (Life-Threatening, Hospitalization, Disabling, Other)
  Sender: FDA-Public Use
  Company Number: JP-ELI_LILLY_AND_COMPANY-JP201809001554

PATIENT
  Age: 72 Year
  Sex: Male
  Weight: 69 kg

DRUGS (11)
  1. HEPARIN [Suspect]
     Active Substance: HEPARIN SODIUM
     Indication: PULMONARY EMBOLISM
     Dosage: UNK, UNKNOWN
     Route: 065
  2. REBAMIPIDE [Concomitant]
     Active Substance: REBAMIPIDE
     Dosage: 100 MG, TID
  3. ERBITUX [Suspect]
     Active Substance: CETUXIMAB
     Dosage: 250 MG/M2, WEEKLY (1/W)
     Route: 041
     Dates: start: 201806, end: 20180724
  4. CARBOCISTEINE [Concomitant]
     Active Substance: CARBOCYSTEINE
     Dosage: 500 MG, TID
     Dates: start: 20180604
  5. MINOCYCLINE [Concomitant]
     Active Substance: MINOCYCLINE\MINOCYCLINE HYDROCHLORIDE
     Indication: PARONYCHIA
     Dosage: 100 MG, DAILY
     Dates: start: 20180720
  6. FEBURIC [Concomitant]
     Active Substance: FEBUXOSTAT
     Dosage: 20 MG, DAILY
     Dates: start: 20180604
  7. PRANLUKAST [Concomitant]
     Active Substance: PRANLUKAST
     Dosage: 225 MG, BID
     Dates: start: 20180604
  8. EMPERACIN [Concomitant]
     Dosage: 5 G, BID
     Dates: start: 20180604
  9. ERBITUX [Suspect]
     Active Substance: CETUXIMAB
     Indication: PHARYNGEAL CANCER
     Dosage: 400 MG/M2, WEEKLY (1/W)
     Route: 041
     Dates: start: 20180605, end: 20180605
  10. CLARITHROMYCIN. [Concomitant]
     Active Substance: CLARITHROMYCIN
     Dosage: 200 MG, DAILY
     Route: 048
     Dates: start: 20180604
  11. MECOBALAMIN [Concomitant]
     Active Substance: METHYLCOBALAMIN
     Dosage: 500 UG, TID
     Dates: start: 20180604

REACTIONS (19)
  - Angina pectoris [Recovering/Resolving]
  - Coronary artery embolism [Recovering/Resolving]
  - Arterial haemorrhage [Recovering/Resolving]
  - Radiation mucositis [Unknown]
  - Myocardial infarction [Recovering/Resolving]
  - Immunodeficiency [Unknown]
  - Back pain [Unknown]
  - Malaise [Unknown]
  - Feeding disorder [Unknown]
  - Haemoglobin decreased [Unknown]
  - Interstitial lung disease [Recovering/Resolving]
  - Pulmonary embolism [Recovering/Resolving]
  - Retroperitoneal haematoma [Recovering/Resolving]
  - Seizure [Unknown]
  - Loss of consciousness [Unknown]
  - Lumbar hernia [Unknown]
  - Venous thrombosis limb [Unknown]
  - Coronary artery stenosis [Unknown]
  - Pneumonia cytomegaloviral [Recovering/Resolving]

NARRATIVE: CASE EVENT DATE: 2018
